FAERS Safety Report 4287000-X (Version None)
Quarter: 2004Q1

REPORT INFORMATION
  Report Type: 
  Country: None (occurrence: None)
  Receive Date: 20040205
  Receipt Date: 20040120
  Transmission Date: 20041129
  Serious: Yes (Death)
  Sender: FDA-Public Use
  Company Number: 191077

PATIENT
  Age: 23 Year
  Sex: Female

DRUGS (20)
  1. AVONEX [Suspect]
     Indication: MULTIPLE SCLEROSIS
     Dosage: 30 MCG QW IM
     Route: 030
     Dates: end: 20030301
  2. AVONEX [Suspect]
     Indication: MULTIPLE SCLEROSIS
     Dosage: 60 MCG QW IM
     Route: 030
     Dates: start: 20030301, end: 20031101
  3. AVONEX [Suspect]
     Indication: MULTIPLE SCLEROSIS
     Dosage: 30 MCG QW IM
     Route: 030
     Dates: start: 20031101, end: 20040114
  4. PLACEBO [Concomitant]
  5. WELLBUTRIN [Concomitant]
  6. PROZAC [Concomitant]
  7. REMERON [Concomitant]
  8. ZYPREXA [Concomitant]
  9. ANTIVERT [Concomitant]
  10. FLORINEF [Concomitant]
  11. DETROL [Concomitant]
  12. FLOMAX [Concomitant]
  13. PRIMIDONE [Concomitant]
  14. INDERAL [Concomitant]
  15. BUSPAR [Concomitant]
  16. NEURONTIN [Concomitant]
  17. GABITRIL [Concomitant]
  18. LORTAB [Concomitant]
  19. MACRODANTIN [Concomitant]
  20. METHADONE HCL [Concomitant]

REACTIONS (4)
  - CARDIO-RESPIRATORY ARREST [None]
  - INFLUENZA LIKE ILLNESS [None]
  - MULTIPLE SCLEROSIS RELAPSE [None]
  - PAIN [None]
